FAERS Safety Report 5708225-X (Version None)
Quarter: 2008Q2

REPORT INFORMATION
  Report Type: 
  Country: None (occurrence: None)
  Receive Date: 20080417
  Receipt Date: 20080414
  Transmission Date: 20081010
  Serious: Yes (Other)
  Sender: FDA-Public Use
  Company Number: JP-BRISTOL-MYERS SQUIBB COMPANY-14115182

PATIENT
  Age: 7 Decade
  Sex: Female

DRUGS (4)
  1. TAXOL [Suspect]
     Indication: NEOPLASM MALIGNANT
     Route: 041
     Dates: start: 20080307, end: 20080307
  2. TAXOL [Suspect]
     Indication: OVARIAN CANCER
     Route: 041
     Dates: start: 20080307, end: 20080307
  3. PARAPLATIN [Suspect]
     Indication: NEOPLASM MALIGNANT
     Route: 041
     Dates: start: 20080307, end: 20080307
  4. PARAPLATIN [Suspect]
     Indication: OVARIAN CANCER
     Route: 041
     Dates: start: 20080307, end: 20080307

REACTIONS (2)
  - BLINDNESS TRANSIENT [None]
  - CEREBRAL INFARCTION [None]
